FAERS Safety Report 7907056-X (Version None)
Quarter: 2011Q4

REPORT INFORMATION
  Report Type: 
  Country: None (occurrence: None)
  Receive Date: 20111110
  Receipt Date: 20111031
  Transmission Date: 20120403
  Serious: Yes (Hospitalization)
  Sender: FDA-Public Use
  Company Number: NL-PERRIGO-11NL009457

PATIENT
  Age: 5 Year
  Sex: Female

DRUGS (2)
  1. PREDNISOLONE SODIUM PHOSPHATE [Suspect]
     Dosage: UNK, GRADUALLY TAPERED OVER 9 DAYS
     Route: 065
  2. PREDNISOLONE SODIUM PHOSPHATE [Suspect]
     Indication: ACUTE LYMPHOCYTIC LEUKAEMIA
     Dosage: 60 MG/M2, QD
     Route: 065

REACTIONS (7)
  - ABDOMINAL PAIN [None]
  - HYPOTENSION [None]
  - MALAISE [None]
  - VOMITING [None]
  - ADRENAL INSUFFICIENCY [None]
  - HEADACHE [None]
  - NAUSEA [None]
